FAERS Safety Report 15893724 (Version 1)
Quarter: 2019Q1

REPORT INFORMATION
  Report Type: Spontaneous
  Country: FR (occurrence: FR)
  Receive Date: 20190131
  Receipt Date: 20190131
  Transmission Date: 20190417
  Serious: Yes (Other)
  Sender: FDA-Public Use
  Company Number: FR-ACCORD-104419

PATIENT
  Age: 47 Year
  Sex: Male
  Weight: 63.5 kg

DRUGS (10)
  1. LEVETIRACETAM. [Concomitant]
     Active Substance: LEVETIRACETAM
  2. CARBOPLATINE ACCORD [Suspect]
     Active Substance: CARBOPLATIN
     Indication: BRONCHIAL CARCINOMA
     Route: 042
     Dates: start: 20180810, end: 20180810
  3. METHYLPREDNISOLONE MYLAN [Concomitant]
     Active Substance: METHYLPREDNISOLONE
  4. FOLIC ACID CCD [Concomitant]
  5. ALIMTA [Concomitant]
     Active Substance: PEMETREXED DISODIUM
  6. PREDNISOLONE. [Concomitant]
     Active Substance: PREDNISOLONE
  7. VITAMINE B DELAGRANGE [Concomitant]
  8. ONDANSETRON ACCORD [Concomitant]
     Active Substance: ONDANSETRON
  9. EMEND [Concomitant]
     Active Substance: APREPITANT
  10. PARACETAMOL [Concomitant]
     Active Substance: ACETAMINOPHEN

REACTIONS (1)
  - Simple partial seizures [Recovered/Resolved]

NARRATIVE: CASE EVENT DATE: 20180810
